FAERS Safety Report 13846752 (Version 1)
Quarter: 2017Q3

REPORT INFORMATION
  Report Type: Spontaneous
  Country: US (occurrence: US)
  Receive Date: 20170808
  Receipt Date: 20170808
  Transmission Date: 20171127
  Serious: No
  Sender: FDA-Public Use
  Company Number: US-SA-2017SA095216

PATIENT
  Age: 67 Year
  Sex: Male

DRUGS (2)
  1. XYZAL ALLERGY 24HR [Suspect]
     Active Substance: LEVOCETIRIZINE DIHYDROCHLORIDE
     Indication: SNEEZING
     Route: 048
     Dates: start: 20170515, end: 20170523
  2. XYZAL ALLERGY 24HR [Suspect]
     Active Substance: LEVOCETIRIZINE DIHYDROCHLORIDE
     Indication: COUGH
     Route: 048
     Dates: start: 20170515, end: 20170523

REACTIONS (7)
  - Feeling abnormal [Unknown]
  - Productive cough [Unknown]
  - Cough [Unknown]
  - Sneezing [Unknown]
  - Lacrimation increased [Unknown]
  - Rhinorrhoea [Unknown]
  - Drug ineffective [Unknown]
